FAERS Safety Report 12840013 (Version 2)
Quarter: 2017Q1

REPORT INFORMATION
  Report Type: Spontaneous
  Country: FR (occurrence: FR)
  Receive Date: 20161012
  Receipt Date: 20170110
  Transmission Date: 20170428
  Serious: Yes (Hospitalization)
  Sender: FDA-Public Use
  Company Number: FR-PFIZER INC-2016461497

PATIENT
  Age: 66 Year
  Sex: Female

DRUGS (9)
  1. SPIRONOLACTONE. [Suspect]
     Active Substance: SPIRONOLACTONE
     Dosage: 750 MG, SINGLE
     Route: 048
     Dates: start: 20160903, end: 20160903
  2. AMLOR [Suspect]
     Active Substance: AMLODIPINE BESYLATE
     Dosage: 200 MG, SINGLE
     Route: 048
     Dates: start: 20160903, end: 20160903
  3. SPIFEN [Suspect]
     Active Substance: IBUPROFEN
     Dosage: 30 DF, SINGLE
     Route: 048
     Dates: start: 20160903, end: 20160903
  4. LEXOMIL [Suspect]
     Active Substance: BROMAZEPAM
     Dosage: 16 DF, SINGLE
     Route: 048
     Dates: start: 20160903, end: 20160903
  5. LASILIX /00032601/ [Suspect]
     Active Substance: FUROSEMIDE
     Dosage: 15 DF, SINGLE
     Route: 048
     Dates: start: 20160903, end: 20160903
  6. DEROXAT [Concomitant]
     Active Substance: PAROXETINE HYDROCHLORIDE
  7. PARACETAMOL [Suspect]
     Active Substance: ACETAMINOPHEN
     Dosage: 4 G, SINGLE
     Route: 048
     Dates: start: 20160903, end: 20160903
  8. IXPRIM [Suspect]
     Active Substance: ACETAMINOPHEN\TRAMADOL HYDROCHLORIDE
     Dosage: 16 DF, SINGLE
     Route: 048
     Dates: start: 20160903, end: 20160903
  9. KETOPROFEN. [Suspect]
     Active Substance: KETOPROFEN
     Dosage: 20 DF, SINGLE
     Route: 048
     Dates: start: 20160903, end: 20160903

REACTIONS (9)
  - Toxicity to various agents [Unknown]
  - Mydriasis [Recovered/Resolved]
  - Hypotonia [Recovered/Resolved]
  - Polyuria [Recovered/Resolved]
  - Vomiting [Recovered/Resolved]
  - Hypochloraemia [Recovered/Resolved]
  - Hyponatraemia [Recovered/Resolved]
  - Somnolence [Recovered/Resolved]
  - Bundle branch block right [Unknown]

NARRATIVE: CASE EVENT DATE: 20160903
